FAERS Safety Report 8663538 (Version 2)
Quarter: 2012Q4

REPORT INFORMATION
  Report Type: Report from Study
  Country: GB (occurrence: GB)
  Receive Date: 20120713
  Receipt Date: 20120907
  Transmission Date: 20130627
  Serious: Yes (Death)
  Sender: FDA-Public Use
  Company Number: GB-JNJFOC-20120702896

PATIENT
  Age: 70 Year
  Sex: Female
  Weight: 51 kg

DRUGS (10)
  1. INFLIXIMAB, RECOMBINANT [Suspect]
     Indication: RHEUMATOID ARTHRITIS
     Route: 042
     Dates: start: 20070215, end: 20070328
  2. STEROIDS NOS [Concomitant]
     Indication: RHEUMATOID ARTHRITIS
  3. LEFLUNOMIDE [Concomitant]
     Indication: RHEUMATOID ARTHRITIS
  4. ATENOLOL [Concomitant]
  5. OMEPRAZOLE [Concomitant]
  6. AMITRIPTYLIN [Concomitant]
  7. ALENDRONATE [Concomitant]
  8. SIMVASTATIN [Concomitant]
  9. AZITHROMYCIN [Concomitant]
  10. FOLIC ACID [Concomitant]

REACTIONS (4)
  - Interstitial lung disease [Fatal]
  - Bronchopneumonia [Fatal]
  - Bronchiectasis [Fatal]
  - Rheumatoid arthritis [Fatal]
